FAERS Safety Report 24625488 (Version 1)
Quarter: 2024Q4

REPORT INFORMATION
  Report Type: Spontaneous
  Country: CN (occurrence: CN)
  Receive Date: 20241115
  Receipt Date: 20241115
  Transmission Date: 20250114
  Serious: Yes (Hospitalization)
  Sender: BEIGENE
  Company Number: CN-BEIGENE-BGN-2024-017995

PATIENT

DRUGS (2)
  1. TISLELIZUMAB [Suspect]
     Active Substance: TISLELIZUMAB
     Indication: Nasopharyngeal cancer
     Dosage: 200 MILLIGRAM
     Route: 041
     Dates: start: 20240903
  2. CATEQUENTINIB DIHYDROCHLORIDE [Suspect]
     Active Substance: CATEQUENTINIB DIHYDROCHLORIDE
     Indication: Nasopharyngeal cancer
     Dosage: 1 CAPSULE
     Route: 048
     Dates: start: 20240903

REACTIONS (7)
  - Mouth ulceration [Recovering/Resolving]
  - Oral pain [Unknown]
  - Eating disorder [Unknown]
  - Mouth haemorrhage [Unknown]
  - Neck pain [Unknown]
  - Rash [Recovered/Resolved]
  - Skin exfoliation [Unknown]

NARRATIVE: CASE EVENT DATE: 20240908
